FAERS Safety Report 9016530 (Version 1)
Quarter: 2013Q1

REPORT INFORMATION
  Report Type: Spontaneous
  Country: US (occurrence: US)
  Receive Date: 20130116
  Receipt Date: 20130116
  Transmission Date: 20140127
  Serious: Yes (Other)
  Sender: FDA-Public Use
  Company Number: US-009507513-1301USA003724

PATIENT
  Age: 3 Year
  Sex: Female

DRUGS (3)
  1. SINGULAIR [Suspect]
     Indication: MULTIPLE ALLERGIES
     Dosage: 1 TABLET
     Route: 048
  2. PEDIAPRED [Concomitant]
     Route: 048
  3. ANTIMICROBIAL (UNSPECIFIED) [Concomitant]

REACTIONS (5)
  - Mood altered [Unknown]
  - Hostility [Unknown]
  - Crying [Unknown]
  - Aggression [Unknown]
  - Abnormal dreams [Unknown]
